FAERS Safety Report 9009489 (Version 3)
Quarter: 2013Q1

REPORT INFORMATION
  Report Type: Report from Study
  Country: BE (occurrence: BE)
  Receive Date: 20130109
  Receipt Date: 20130225
  Transmission Date: 20140127
  Serious: Yes (Other)
  Sender: FDA-Public Use
  Company Number: BE-ROCHE-1091217

PATIENT
  Age: 49 Year
  Sex: Female
  Weight: 67 kg

DRUGS (5)
  1. ZELBORAF [Suspect]
     Indication: METASTATIC MALIGNANT MELANOMA
     Route: 048
     Dates: start: 20120718, end: 20120719
  2. ZELBORAF [Suspect]
     Route: 048
     Dates: start: 20120719
  3. ZELBORAF [Suspect]
     Route: 065
     Dates: start: 20120723
  4. CETIRIZINE [Concomitant]
     Indication: ANTIALLERGIC THERAPY
     Route: 048
     Dates: start: 2002
  5. EXACYL [Concomitant]
     Route: 048
     Dates: start: 20110204

REACTIONS (3)
  - Hypersensitivity [Recovered/Resolved]
  - Goitre [Unknown]
  - Skin papilloma [Not Recovered/Not Resolved]
